FAERS Safety Report 9091470 (Version 1)
Quarter: 2013Q1

REPORT INFORMATION
  Report Type: Not Available
  Country: NL (occurrence: NL)
  Receive Date: 20130201
  Receipt Date: 20130201
  Transmission Date: 20140127
  Serious: Yes (Other)
  Sender: FDA-Public Use
  Company Number: NL-ASTELLAS-2013EU000744

PATIENT
  Age: 55 Year
  Sex: Female
  Weight: 70 kg

DRUGS (5)
  1. PROGRAFT [Suspect]
     Indication: LUNG TRANSPLANT
     Dosage: 3 MG, BID
     Route: 065
     Dates: start: 20070411
  2. CELLCEPT                           /01275102/ [Concomitant]
     Dosage: 500 MG, BID
     Dates: start: 20070412
  3. PREDNISONE [Concomitant]
     Dosage: UNK MG, UID/QD
     Route: 065
     Dates: start: 20070412
  4. COTRIMOXAZOLE [Concomitant]
     Dosage: UNK
     Route: 065
     Dates: start: 20070412
  5. PANTOPRAZOLE [Concomitant]
     Dosage: 40 MG, BID
     Route: 065
     Dates: start: 20070412

REACTIONS (1)
  - Parkinson^s disease [Not Recovered/Not Resolved]
